FAERS Safety Report 20498955 (Version 3)
Quarter: 2022Q2

REPORT INFORMATION
  Report Type: Report from Study
  Country: GB (occurrence: GB)
  Receive Date: 20220222
  Receipt Date: 20220516
  Transmission Date: 20220721
  Serious: Yes (Hospitalization, Other)
  Sender: FDA-Public Use
  Company Number: GB-CELLTRION INC.-2022GB001812

PATIENT

DRUGS (11)
  1. TRASTUZUMAB [Suspect]
     Active Substance: TRASTUZUMAB
     Indication: HER2 positive breast cancer
     Dosage: 378 MG (PHARMACEUTICAL DOSAGE FORM: 230)
     Route: 041
     Dates: start: 20170316, end: 20201012
  2. TRASTUZUMAB [Suspect]
     Active Substance: TRASTUZUMAB
     Dosage: 378 MG (PHARMACEUTICAL DOSAGE FORM: 230)
     Route: 041
     Dates: start: 20170316, end: 20201012
  3. TRASTUZUMAB [Suspect]
     Active Substance: TRASTUZUMAB
     Dosage: 504 MG (PHARMACEUTICAL DOSAGE FORM: 230)
     Route: 041
     Dates: start: 20170224, end: 20170224
  4. TRASTUZUMAB [Suspect]
     Active Substance: TRASTUZUMAB
     Dosage: 504 MG (PHARMACEUTICAL DOSAGE FORM: 230)
     Route: 041
     Dates: start: 20170224, end: 20170224
  5. DOCETAXEL [Suspect]
     Active Substance: DOCETAXEL
     Indication: HER2 positive breast cancer
     Dosage: 74 MG, EVERY 3 WEEKS
     Route: 042
     Dates: start: 20170224, end: 20170518
  6. PERTUZUMAB [Suspect]
     Active Substance: PERTUZUMAB
     Indication: HER2 positive breast cancer
     Dosage: 840 MG (PHARMACEUTICAL DOSAGE FORM: 230)
     Route: 042
     Dates: start: 20170223, end: 20170223
  7. PERTUZUMAB [Suspect]
     Active Substance: PERTUZUMAB
     Indication: Breast cancer metastatic
     Dosage: 840 MG (PHARMACEUTICAL DOSAGE FORM: 230)
     Route: 042
     Dates: start: 20170223, end: 20170223
  8. PERTUZUMAB [Suspect]
     Active Substance: PERTUZUMAB
     Dosage: 420 MG, EVERY 3 WEEKS (ROUTE: INTRA CORPUS CAVERNOSUM; PHARMACEUTICAL DOSAGE FORM: 230)
     Dates: start: 20170316, end: 20201012
  9. PERTUZUMAB [Suspect]
     Active Substance: PERTUZUMAB
     Dosage: 420 MG, EVERY 3 WEEKS (ROUTE: INTRA CORPUS CAVERNOSUM; PHARMACEUTICAL DOSAGE FORM: 230)
     Dates: start: 20170316, end: 20201012
  10. PREGABALIN [Concomitant]
     Active Substance: PREGABALIN
     Indication: Neuropathy peripheral
     Dosage: 300 MG, EVERY 1 DAY (PHARMACEUTICAL DOSAGE FORM: 5; CUMULATIVE DOSE TO FIRST REACTION: 261300.0 MG)
     Route: 048
     Dates: start: 20180510
  11. PREGABALIN [Concomitant]
     Active Substance: PREGABALIN
     Dosage: 100 MG, EVERY 1 DAY (PHARMACEUTICAL DOSAGE FORM: 5; CUMULATIVE DOSE TO FIRST REACTION: 91895.836 MG)
     Route: 048
     Dates: start: 20180323, end: 20180510

REACTIONS (1)
  - Interstitial lung disease [Not Recovered/Not Resolved]

NARRATIVE: CASE EVENT DATE: 20200927
